FAERS Safety Report 5259026-0 (Version None)
Quarter: 2007Q1

REPORT INFORMATION
  Report Type: 
  Country: None (occurrence: None)
  Receive Date: 20070308
  Receipt Date: 20070226
  Transmission Date: 20070707
  Serious: Yes (Death, Hospitalization)
  Sender: FDA-Public Use
  Company Number: US-AMGEN-US212848

PATIENT
  Sex: Female
  Weight: 107.1 kg

DRUGS (1)
  1. PROCRIT [Suspect]
     Indication: RENAL FAILURE CHRONIC
     Route: 030
     Dates: start: 20060726

REACTIONS (4)
  - LEG AMPUTATION [None]
  - LOCALISED INFECTION [None]
  - RENAL FAILURE ACUTE [None]
  - SEPSIS [None]
